FAERS Safety Report 22607772 (Version 1)
Quarter: 2023Q2

REPORT INFORMATION
  Report Type: Spontaneous
  Country: US (occurrence: US)
  Receive Date: 20230616
  Receipt Date: 20230616
  Transmission Date: 20230721
  Serious: No
  Sender: FDA-Public Use
  Company Number: US-AUROBINDO-AUR-APL-2023-007414

PATIENT
  Sex: Female

DRUGS (1)
  1. ZANTAC 360 [Suspect]
     Active Substance: FAMOTIDINE
     Indication: Gastric pH decreased
     Dosage: 1 DOSAGE FORM, ONCE A DAY
     Route: 065

REACTIONS (6)
  - Euphoric mood [Unknown]
  - Illness [Unknown]
  - Gait disturbance [Unknown]
  - Product dispensing error [Unknown]
  - Drug ineffective [Unknown]
  - Wrong product administered [Unknown]
